FAERS Safety Report 4723155-8 (Version None)
Quarter: 2005Q3

REPORT INFORMATION
  Report Type: 
  Country: None (occurrence: None)
  Receive Date: 20050719
  Receipt Date: 20040810
  Transmission Date: 20060218
  Serious: Yes (Other)
  Sender: FDA-Public Use
  Company Number: 2004225597US

PATIENT
  Sex: Female

DRUGS (2)
  1. CELEBREX [Suspect]
     Dosage: UNK, UNK, ORAL
     Route: 048
  2. VIOXX [Concomitant]

REACTIONS (1)
  - HAEMATOCHEZIA [None]
